FAERS Safety Report 14035163 (Version 1)
Quarter: 2017Q4

REPORT INFORMATION
  Report Type: Spontaneous
  Country: US (occurrence: US)
  Receive Date: 20171003
  Receipt Date: 20171003
  Transmission Date: 20180321
  Serious: Yes (Life-Threatening)
  Sender: FDA-Public Use
  Company Number: US-BEH-2017083982

PATIENT
  Age: 66 Year
  Sex: Male

DRUGS (1)
  1. PRIVIGEN [Suspect]
     Active Substance: HUMAN IMMUNOGLOBULIN G
     Indication: IMMUNODEFICIENCY COMMON VARIABLE
     Dosage: 40 G, QMT
     Route: 042
     Dates: start: 20170914, end: 20170927

REACTIONS (2)
  - Skin mass [Unknown]
  - Rash generalised [Unknown]

NARRATIVE: CASE EVENT DATE: 20170927
